FAERS Safety Report 11986475 (Version 1)
Quarter: 2016Q1

REPORT INFORMATION
  Report Type: Spontaneous
  Country: US (occurrence: None)
  Receive Date: 20160201
  Receipt Date: 20160201
  Transmission Date: 20160526
  Serious: Yes (Death)
  Sender: FDA-Public Use
  Company Number: None

PATIENT
  Sex: Female

DRUGS (1)
  1. MORPHINE MORPHINE [Suspect]
     Active Substance: MORPHINE
     Dosage: SOLUTION  3.75 ML (75 MG)
     Route: 048

REACTIONS (5)
  - Accidental overdose [None]
  - Fall [None]
  - Respiratory depression [None]
  - Device use error [None]
  - Musculoskeletal pain [None]
